FAERS Safety Report 7218052-2 (Version None)
Quarter: 2010Q4

REPORT INFORMATION
  Report Type: 
  Country: None (occurrence: None)
  Receive Date: 20101230
  Receipt Date: 20101230
  Transmission Date: 20110411
  Serious: Yes (Hospitalization)
  Sender: FDA-Public Use
  Company Number: 056-21880-10102423

PATIENT
  Age: 54 Year
  Sex: Female

DRUGS (9)
  1. REVLIMID [Suspect]
     Indication: MYCOSIS FUNGOIDES
     Dosage: 25 MG, 1 IN 1 D, PO; 15 MG, PO
     Route: 048
     Dates: start: 20100923, end: 20101009
  2. REVLIMID [Suspect]
     Indication: MYCOSIS FUNGOIDES
     Dosage: 25 MG, 1 IN 1 D, PO; 15 MG, PO
     Route: 048
     Dates: start: 20101018, end: 20101123
  3. DEXAMETHASONE [Concomitant]
  4. POLARAMINE [Concomitant]
  5. BACTRIM FORTE (BACTRIM) [Concomitant]
  6. VALACYCLOVIR [Concomitant]
  7. PRIMPERAN TAB [Concomitant]
  8. NEXIUM [Concomitant]
  9. XANAX [Concomitant]

REACTIONS (16)
  - ANTIBIOTIC RESISTANT STAPHYLOCOCCUS TEST POSITIVE [None]
  - BLOOD ALBUMIN DECREASED [None]
  - BLOOD CULTURE POSITIVE [None]
  - BLOOD LACTATE DEHYDROGENASE INCREASED [None]
  - ERYTHEMA [None]
  - FACE OEDEMA [None]
  - HAEMOGLOBIN DECREASED [None]
  - INDURATION [None]
  - LYMPHADENOPATHY [None]
  - OEDEMA PERIPHERAL [None]
  - PLATELET COUNT DECREASED [None]
  - PROTEIN TOTAL DECREASED [None]
  - PRURITUS GENERALISED [None]
  - RASH GENERALISED [None]
  - SERUM FERRITIN INCREASED [None]
  - SKIN EXFOLIATION [None]
